FAERS Safety Report 5596777-2 (Version None)
Quarter: 2008Q1

REPORT INFORMATION
  Report Type: 
  Country: None (occurrence: None)
  Receive Date: 20080118
  Receipt Date: 20080109
  Transmission Date: 20080703
  Serious: Yes (Death)
  Sender: FDA-Public Use
  Company Number: US-PFIZER INC-2008003156

PATIENT
  Age: 46 Year
  Sex: Male

DRUGS (5)
  1. SERTRALINE [Suspect]
     Route: 048
  2. OXYCODONE [Suspect]
     Route: 048
  3. DECONGESTANT [Suspect]
     Route: 048
  4. BUPROPION HCL [Suspect]
     Route: 048
  5. IBUPROFEN [Suspect]
     Route: 048

REACTIONS (1)
  - DEATH [None]
